FAERS Safety Report 19877934 (Version 1)
Quarter: 2021Q3

REPORT INFORMATION
  Report Type: Spontaneous
  Country: CA (occurrence: CA)
  Receive Date: 20210923
  Receipt Date: 20210923
  Transmission Date: 20211014
  Serious: Yes (Hospitalization)
  Sender: FDA-Public Use
  Company Number: CA-TEVA-2021-CA-1955737

PATIENT
  Age: 36 Year
  Sex: Female

DRUGS (9)
  1. DOCUSATE SODIUM. [Concomitant]
     Active Substance: DOCUSATE SODIUM
  2. DIMENHYDRINATE. [Concomitant]
     Active Substance: DIMENHYDRINATE
  3. DOXORUBICIN INJECTION [Suspect]
     Active Substance: DOXORUBICIN
  4. BLEOMYCIN [Suspect]
     Active Substance: BLEOMYCIN SULFATE
  5. LORAZEPAM. [Concomitant]
     Active Substance: LORAZEPAM
  6. VINBLASTINE SULPHATE INJECTION [Suspect]
     Active Substance: VINBLASTINE SULFATE
  7. RABEPRAZOLE [Concomitant]
     Active Substance: RABEPRAZOLE
  8. DACARBAZINE FOR INJECTION BP [Suspect]
     Active Substance: DACARBAZINE
  9. RIVAROXABAN [Concomitant]
     Active Substance: RIVAROXABAN
     Route: 065

REACTIONS (3)
  - Fibromyalgia [Unknown]
  - Deep vein thrombosis [Unknown]
  - Febrile neutropenia [Unknown]
